FAERS Safety Report 14630278 (Version 1)
Quarter: 2018Q1

REPORT INFORMATION
  Report Type: Spontaneous
  Country: US (occurrence: US)
  Receive Date: 20180313
  Receipt Date: 20180313
  Transmission Date: 20180509
  Serious: No
  Sender: FDA-Public Use
  Company Number: None

PATIENT
  Age: 46 Year
  Sex: Female
  Weight: 99.79 kg

DRUGS (5)
  1. NEXPLANON [Suspect]
     Active Substance: ETONOGESTREL
  2. SERTRALINE [Concomitant]
     Active Substance: SERTRALINE HYDROCHLORIDE
  3. VESICARE [Concomitant]
     Active Substance: SOLIFENACIN SUCCINATE
  4. BUTALB-ACETAMIN-CAFF [Concomitant]
     Active Substance: ACETAMINOPHEN\BUTALBITAL\CAFFEINE
  5. REPLEX [Concomitant]

REACTIONS (16)
  - Dizziness [None]
  - Loss of consciousness [None]
  - Weight increased [None]
  - Injection site pain [None]
  - Loss of libido [None]
  - Sensation of foreign body [None]
  - Asthenia [None]
  - Feeling abnormal [None]
  - Haemorrhage [None]
  - Nausea [None]
  - Migraine [None]
  - Myalgia [None]
  - Premenstrual dysphoric disorder [None]
  - Somnolence [None]
  - Fatigue [None]
  - Mood swings [None]

NARRATIVE: CASE EVENT DATE: 20170322
